FAERS Safety Report 9692216 (Version 1)
Quarter: 2013Q4

REPORT INFORMATION
  Report Type: Spontaneous
  Country: GB (occurrence: GB)
  Receive Date: 20131118
  Receipt Date: 20131118
  Transmission Date: 20140711
  Serious: Yes (Hospitalization, Other)
  Sender: FDA-Public Use
  Company Number: GB-MERCK-1311GBR003527

PATIENT
  Age: 82 Year
  Sex: Male

DRUGS (1)
  1. DEXAMETHASONE TABLETS BP 2.0MG [Suspect]
     Indication: CENTRAL NERVOUS SYSTEM LYMPHOMA
     Dosage: 8 MG, BID
     Route: 048

REACTIONS (3)
  - Pneumonia necrotising [Recovering/Resolving]
  - Staphylococcal bacteraemia [Recovering/Resolving]
  - Bacteriuria [Recovering/Resolving]
